FAERS Safety Report 16752407 (Version 7)
Quarter: 2020Q1

REPORT INFORMATION
  Report Type: Report from Study
  Country: US (occurrence: US)
  Receive Date: 20190828
  Receipt Date: 20200116
  Transmission Date: 20200409
  Serious: Yes (Hospitalization, Other)
  Sender: FDA-Public Use
  Company Number: PHEH2019US035464

PATIENT
  Age: 42 Year
  Sex: Female
  Weight: 59.5 kg

DRUGS (4)
  1. OPSUMIT [Concomitant]
     Active Substance: MACITENTAN
     Indication: PRODUCT USED FOR UNKNOWN INDICATION
     Route: 065
  2. TREPROSTINIL. [Suspect]
     Active Substance: TREPROSTINIL
     Indication: PULMONARY ARTERIAL HYPERTENSION
     Dosage: 29 NG/KG/MIN, CONTINUOUS
     Route: 042
     Dates: start: 20190822
  3. WARFARIN [Concomitant]
     Active Substance: WARFARIN
     Indication: PRODUCT USED FOR UNKNOWN INDICATION
     Route: 065
  4. TREPROSTINIL. [Suspect]
     Active Substance: TREPROSTINIL
     Dosage: 29 NG/KG/MIN, CONTINUOUS
     Route: 042
     Dates: start: 20190822

REACTIONS (9)
  - Pulmonary congestion [Unknown]
  - Thrombosis [Unknown]
  - Malaise [Unknown]
  - Limb injury [Unknown]
  - Infection [Unknown]
  - Abdominal pain upper [Unknown]
  - Diarrhoea [Unknown]
  - Feeling abnormal [Unknown]
  - Pain in jaw [Unknown]

NARRATIVE: CASE EVENT DATE: 20190822
